FAERS Safety Report 23167107 (Version 2)
Quarter: 2024Q1

REPORT INFORMATION
  Report Type: Spontaneous
  Country: US (occurrence: US)
  Receive Date: 20231109
  Receipt Date: 20240215
  Transmission Date: 20240410
  Serious: Yes (Other)
  Sender: FDA-Public Use
  Company Number: US-JNJFOC-20231101259

PATIENT
  Age: 8 Decade
  Sex: Male

DRUGS (3)
  1. SIMPONI ARIA [Suspect]
     Active Substance: GOLIMUMAB
     Indication: Psoriatic arthropathy
     Route: 040
  2. METHOTREXATE [Suspect]
     Active Substance: METHOTREXATE
     Indication: Drug resistance
     Dosage: 1 WEEKS
  3. LEFLUNOMIDE [Concomitant]
     Active Substance: LEFLUNOMIDE
     Indication: Product used for unknown indication

REACTIONS (6)
  - Autoimmune thyroiditis [Unknown]
  - Weight decreased [Unknown]
  - Pernicious anaemia [Unknown]
  - Clavicle fracture [Unknown]
  - Tinnitus [Unknown]
  - Road traffic accident [Unknown]
